FAERS Safety Report 5907122-4 (Version None)
Quarter: 2008Q4

REPORT INFORMATION
  Report Type: 
  Country: None (occurrence: None)
  Receive Date: 20081003
  Receipt Date: 20081001
  Transmission Date: 20090506
  Serious: Yes (Life-Threatening, Hospitalization)
  Sender: FDA-Public Use
  Company Number: DE-WYE-G01775108

PATIENT
  Sex: Female
  Weight: 69.4 kg

DRUGS (11)
  1. TREVILOR RETARD [Suspect]
     Indication: DEPRESSION
     Route: 048
     Dates: start: 20080406, end: 20080101
  2. TREVILOR RETARD [Suspect]
     Route: 048
     Dates: start: 20080101, end: 20080528
  3. TRIMIPRAMINE MALEATE [Concomitant]
     Indication: SLEEP DISORDER
     Route: 048
     Dates: start: 20080417, end: 20080528
  4. TRIMIPRAMINE MALEATE [Concomitant]
     Indication: DEPRESSION
  5. PENTALONG 50 [Concomitant]
     Indication: HYPERTENSION
     Route: 048
     Dates: start: 20080417, end: 20080528
  6. VIANI [Concomitant]
     Indication: ASTHMA
     Dosage: 50 ?G SALMETEROL XINAFOATE / 250 ?G FLUTICASONE PROPIONATE ON DEMAND
     Route: 055
     Dates: start: 20080417, end: 20080528
  7. BERLTHYROX [Concomitant]
     Indication: HYPOTHYROIDISM
     Route: 048
     Dates: start: 20080417, end: 20080528
  8. PANTOPRAZOLE SODIUM [Concomitant]
     Indication: GASTRIC DISORDER
     Route: 048
     Dates: start: 20080417, end: 20080528
  9. SIOFOR [Concomitant]
     Indication: DIABETES MELLITUS
     Route: 048
     Dates: start: 20080428, end: 20080528
  10. QUILONUM - SLOW RELEASE [Suspect]
     Indication: BIPOLAR DISORDER
     Route: 048
     Dates: start: 20080417, end: 20080528
  11. ACERCOMP [Concomitant]
     Indication: HYPERTENSION
     Dosage: 20 MG LISINOPRIL / 12.5 MG HYDROCHLOROTHIAZIDE PER DAY
     Route: 048
     Dates: start: 20080417, end: 20080528

REACTIONS (6)
  - ANTIDEPRESSANT DRUG LEVEL ABOVE THERAPEUTIC [None]
  - ANTIPSYCHOTIC DRUG LEVEL ABOVE THERAPEUTIC [None]
  - BRADYCARDIA [None]
  - DELIRIUM [None]
  - MYOCLONUS [None]
  - RENAL FAILURE [None]
